FAERS Safety Report 4452526-2 (Version None)
Quarter: 2004Q3

REPORT INFORMATION
  Report Type: 
  Country: None (occurrence: None)
  Receive Date: 20040813
  Receipt Date: 20040415
  Transmission Date: 20050211
  Serious: Yes (Other)
  Sender: FDA-Public Use
  Company Number: PHEH2004US03078

PATIENT
  Age: 87 Year
  Sex: Female

DRUGS (2)
  1. VISUDYNE [Suspect]
     Indication: EYE DISORDER
     Dates: start: 20040310, end: 20040310
  2. VISUDYNE [Suspect]
     Indication: HISTOPLASMOSIS
     Dates: start: 20040310, end: 20040310

REACTIONS (3)
  - ABDOMINAL PAIN [None]
  - NAUSEA [None]
  - VISUAL ACUITY REDUCED [None]
